FAERS Safety Report 6190469-7 (Version None)
Quarter: 2009Q2

REPORT INFORMATION
  Report Type: 
  Country: None (occurrence: None)
  Receive Date: 20090514
  Receipt Date: 20090506
  Transmission Date: 20091009
  Serious: Yes (Hospitalization)
  Sender: FDA-Public Use
  Company Number: PHHY2009GB17779

PATIENT
  Age: 82 Year
  Sex: Male

DRUGS (2)
  1. VOLTAREN [Suspect]
     Indication: PAIN
     Dosage: 50 MG, UNK
     Route: 048
     Dates: start: 20090328, end: 20090403
  2. DABIGATRAN ETEXILATE (PRADAXA) [Suspect]
     Indication: THROMBOSIS PROPHYLAXIS
     Dosage: 110 MG, UNK
     Route: 048
     Dates: start: 20090328, end: 20090403

REACTIONS (2)
  - POST PROCEDURAL HAEMATOMA [None]
  - WOUND SECRETION [None]
